FAERS Safety Report 6167629-4 (Version None)
Quarter: 2009Q2

REPORT INFORMATION
  Report Type: 
  Country: None (occurrence: None)
  Receive Date: 20090424
  Receipt Date: 20070817
  Transmission Date: 20091009
  Serious: Yes (Other)
  Sender: FDA-Public Use
  Company Number: PHBS2007BR13722

PATIENT
  Sex: Male
  Weight: 140 kg

DRUGS (3)
  1. TEGRETOL [Suspect]
     Indication: CONVULSION
     Dosage: 5 TABLETS/DAY
     Route: 048
     Dates: start: 19970101
  2. URBANYL [Concomitant]
     Indication: CONVULSION
     Dosage: 40 MG/DAY
     Route: 048
  3. NEOZINE [Concomitant]

REACTIONS (6)
  - AGITATION [None]
  - CONVULSION [None]
  - GAIT DISTURBANCE [None]
  - INSOMNIA [None]
  - RASH MACULAR [None]
  - WEIGHT INCREASED [None]
